FAERS Safety Report 6399058-2 (Version None)
Quarter: 2009Q4

REPORT INFORMATION
  Report Type: 
  Country: None (occurrence: None)
  Receive Date: 20091013
  Receipt Date: 20090929
  Transmission Date: 20100525
  Serious: Yes (Death, Other)
  Sender: FDA-Public Use
  Company Number: DE-GENENTECH-291676

PATIENT
  Sex: Male

DRUGS (3)
  1. AVASTIN [Suspect]
     Indication: NON-SMALL CELL LUNG CANCER
     Route: 065
  2. TAXOL [Concomitant]
     Indication: DRUG USE FOR UNKNOWN INDICATION
  3. CARBOPLATIN [Concomitant]
     Indication: DRUG USE FOR UNKNOWN INDICATION

REACTIONS (2)
  - PULMONARY EMBOLISM [None]
  - VENOUS THROMBOSIS [None]
